FAERS Safety Report 7437890-4 (Version None)
Quarter: 2011Q2

REPORT INFORMATION
  Report Type: 
  Country: None (occurrence: None)
  Receive Date: 20110426
  Receipt Date: 20110420
  Transmission Date: 20111010
  Serious: Yes (Hospitalization)
  Sender: FDA-Public Use
  Company Number: B0712207A

PATIENT
  Age: 41 Year
  Sex: Female
  Weight: 170.5 kg

DRUGS (7)
  1. RELAFEN [Concomitant]
  2. VIOXX [Concomitant]
  3. ADVAIR DISKUS 100/50 [Concomitant]
  4. PREVACID [Concomitant]
  5. AVANDIA [Suspect]
     Indication: DIABETES MELLITUS
     Dosage: 4MG PER DAY
     Route: 048
  6. CELEBREX [Concomitant]
     Dates: end: 20010101
  7. PAXIL [Concomitant]

REACTIONS (4)
  - HYPERTENSION [None]
  - ANGINA PECTORIS [None]
  - HYPERLIPIDAEMIA [None]
  - CHEST PAIN [None]
